FAERS Safety Report 5509086-4 (Version None)
Quarter: 2007Q4

REPORT INFORMATION
  Report Type: 
  Country: None (occurrence: None)
  Receive Date: 20071107
  Receipt Date: 20071105
  Transmission Date: 20080405
  Serious: Yes (Other)
  Sender: FDA-Public Use
  Company Number: DE-WYE-G00563107

PATIENT
  Sex: Male

DRUGS (4)
  1. VENLAFAXINE HCL [Suspect]
     Route: 048
  2. TRILEPTAL [Concomitant]
     Route: 048
  3. TETRAZEPAM [Concomitant]
     Dosage: UNKNOWN
     Route: 048
  4. BACLOFEN [Concomitant]
     Route: 048

REACTIONS (2)
  - CONDITION AGGRAVATED [None]
  - EPILEPSY [None]
